FAERS Safety Report 11269002 (Version 1)
Quarter: 2015Q3

REPORT INFORMATION
  Report Type: Spontaneous
  Country: US (occurrence: US)
  Receive Date: 20150714
  Receipt Date: 20150714
  Transmission Date: 20151125
  Serious: No
  Sender: FDA-Public Use
  Company Number: PHEH2014US016808

PATIENT
  Age: 92 Year
  Sex: Male
  Weight: 51.26 kg

DRUGS (5)
  1. VALSARTAN. [Suspect]
     Active Substance: VALSARTAN
     Dosage: UNK UKN, UNK
     Dates: start: 20140802, end: 20140816
  2. DIOVAN [Suspect]
     Active Substance: VALSARTAN
     Dosage: 80 MG, QD
     Dates: end: 20140802
  3. LOSARTAN. [Suspect]
     Active Substance: LOSARTAN
     Dosage: 50 MG, UNK
     Dates: start: 20140817
  4. KLONOPIN [Concomitant]
     Active Substance: CLONAZEPAM
     Dosage: 0.5 MG (UP TWO AS NEDDED)
     Dates: end: 20140816
  5. KLONOPIN [Concomitant]
     Active Substance: CLONAZEPAM
     Dosage: 0.25 MG (UP TWO AS NEDDED)
     Dates: start: 20140817

REACTIONS (1)
  - Hypotension [Unknown]
